FAERS Safety Report 16748078 (Version 1)
Quarter: 2019Q3

REPORT INFORMATION
  Report Type: Report from Study
  Country: None (occurrence: JP)
  Receive Date: 20190827
  Receipt Date: 20190827
  Transmission Date: 20191005
  Serious: Yes (Death, Life-Threatening, Hospitalization, Other)
  Sender: FDA-Public Use
  Company Number: JP-ABBVIE-19P-087-2796445-00

PATIENT
  Age: 55 Year
  Sex: Male
  Weight: 53 kg

DRUGS (11)
  1. ZACRAS COMBINATION TABLETS LD [Concomitant]
     Active Substance: AMLODIPINE BESYLATE\AZILSARTAN
     Indication: HYPERTENSION
     Route: 048
     Dates: start: 20161208, end: 20190524
  2. LANSOPRAZOLE OD [Concomitant]
     Active Substance: LANSOPRAZOLE
     Indication: GASTROOESOPHAGEAL REFLUX DISEASE
     Route: 048
     Dates: start: 2011, end: 20190523
  3. ALMETA [Concomitant]
     Active Substance: ALCLOMETASONE DIPROPIONATE
     Indication: PSORIASIS
     Dosage: 1 APPLICATION
     Route: 061
     Dates: start: 20170913, end: 20190523
  4. LORAZEPAM. [Concomitant]
     Active Substance: LORAZEPAM
     Indication: SOMATIC SYMPTOM DISORDER
     Route: 048
     Dates: start: 20160616, end: 20190601
  5. FOLIAMIN [Concomitant]
     Active Substance: FOLIC ACID
     Indication: VITAMIN SUPPLEMENTATION
     Route: 048
     Dates: start: 20170713, end: 20190524
  6. UPADACITINIB [Suspect]
     Active Substance: UPADACITINIB
     Indication: PSORIATIC ARTHROPATHY
     Route: 048
     Dates: start: 20180214, end: 20190523
  7. CELECOX [Concomitant]
     Active Substance: CELECOXIB
     Indication: PSORIATIC ARTHROPATHY
     Route: 048
     Dates: start: 20160627
  8. NAFAMOSTAT [Concomitant]
     Active Substance: NAFAMOSTAT
     Indication: THROMBOSIS PROPHYLAXIS
     Route: 041
     Dates: start: 20190528, end: 20190619
  9. PLACEBO [Suspect]
     Active Substance: UNSPECIFIED INGREDIENT
     Indication: PSORIATIC ARTHROPATHY
     Route: 048
     Dates: start: 20170830, end: 20180213
  10. ANTEBATE [Concomitant]
     Active Substance: BETAMETHASONE DIPROPIONATE
     Indication: PSORIASIS
     Dosage: 1 APPLICATION
     Route: 061
     Dates: start: 20180704, end: 20190523
  11. NAFAMOSTAT [Concomitant]
     Active Substance: NAFAMOSTAT
     Indication: DISSEMINATED INTRAVASCULAR COAGULATION

REACTIONS (6)
  - Duodenal ulcer [Unknown]
  - Cytomegalovirus infection [Unknown]
  - Pancytopenia [Fatal]
  - Pneumothorax [Unknown]
  - Pneumocystis jirovecii pneumonia [Unknown]
  - Interstitial lung disease [Unknown]

NARRATIVE: CASE EVENT DATE: 20190524
